FAERS Safety Report 8384118-7 (Version None)
Quarter: 2012Q2

REPORT INFORMATION
  Report Type: 
  Country: None (occurrence: None)
  Receive Date: 20120524
  Receipt Date: 20120510
  Transmission Date: 20120825
  Serious: Yes (Other)
  Sender: FDA-Public Use
  Company Number: DE-ROCHE-1068152

PATIENT
  Age: 66 Year
  Sex: Female
  Weight: 71.7 kg

DRUGS (3)
  1. CARBOPLATIN [Suspect]
     Indication: OVARIAN CANCER
     Dosage: LAST DOSE:03/MAY/2012, 5 MG AUC
     Route: 042
     Dates: start: 20120301
  2. AVASTIN [Suspect]
     Indication: OVARIAN CANCER
     Dosage: LAST DOSE:03/MAY/2012, 15 MG/KG
     Route: 042
     Dates: start: 20120322
  3. PACLITAXEL [Suspect]
     Indication: OVARIAN CANCER
     Dosage: LAST DOSE:03/MAY/2012
     Route: 042
     Dates: start: 20120301

REACTIONS (1)
  - HYDROCEPHALUS [None]
